FAERS Safety Report 21559500 (Version 10)
Quarter: 2024Q1

REPORT INFORMATION
  Report Type: Report from Study
  Country: FR (occurrence: FR)
  Receive Date: 20221107
  Receipt Date: 20240313
  Transmission Date: 20240409
  Serious: Yes (Other)
  Sender: FDA-Public Use
  Company Number: FR-002147023-NVSC2022FR249548

PATIENT
  Age: 77 Year
  Sex: Female
  Weight: 48 kg

DRUGS (5)
  1. SCEMBLIX [Suspect]
     Active Substance: ASCIMINIB HYDROCHLORIDE
     Indication: Chronic myeloid leukaemia
     Dosage: 80 MG, QD
     Route: 065
     Dates: start: 20220829, end: 20220914
  2. SCEMBLIX [Suspect]
     Active Substance: ASCIMINIB HYDROCHLORIDE
     Dosage: 40 MG, QD
     Route: 065
     Dates: start: 20221018, end: 20221107
  3. SCEMBLIX [Suspect]
     Active Substance: ASCIMINIB HYDROCHLORIDE
     Dosage: 40 MG, DAILY / EVERY OTHER DAY)
     Route: 065
     Dates: start: 20221130, end: 20230213
  4. SCEMBLIX [Suspect]
     Active Substance: ASCIMINIB HYDROCHLORIDE
     Dosage: 40 MG, 5 X WEEKLY (EVERY OTHER DAY FROM MONDAY TO FRIDAY, SATURDAY AND SUNDAY)
     Route: 065
     Dates: start: 20230214, end: 20230406
  5. SCEMBLIX [Suspect]
     Active Substance: ASCIMINIB HYDROCHLORIDE
     Dosage: 20 MG, QD
     Route: 065
     Dates: start: 20230509

REACTIONS (11)
  - Renal failure [Unknown]
  - Liver disorder [Unknown]
  - Blood alkaline phosphatase abnormal [Unknown]
  - Gamma-glutamyltransferase abnormal [Unknown]
  - Cardiotoxicity [Unknown]
  - Nephropathy toxic [Unknown]
  - Hepatotoxicity [Unknown]
  - Anaemia [Unknown]
  - Adverse event [Unknown]
  - Prescribed underdose [Unknown]
  - Drug ineffective [Unknown]

NARRATIVE: CASE EVENT DATE: 20230509
